APPROVED DRUG PRODUCT: FOCALIN XR
Active Ingredient: DEXMETHYLPHENIDATE HYDROCHLORIDE
Strength: 20MG
Dosage Form/Route: CAPSULE, EXTENDED RELEASE;ORAL
Application: N021802 | Product #003 | TE Code: AB
Applicant: SANDOZ INC
Approved: May 26, 2005 | RLD: Yes | RS: No | Type: RX